FAERS Safety Report 6902847-6 (Version None)
Quarter: 2010Q3

REPORT INFORMATION
  Report Type: 
  Country: None (occurrence: None)
  Receive Date: 20100803
  Receipt Date: 20080924
  Transmission Date: 20110219
  Serious: No
  Sender: FDA-Public Use
  Company Number: US-PFIZER INC-2008053388

PATIENT
  Sex: Female
  Weight: 66.22 kg

DRUGS (6)
  1. LYRICA [Suspect]
     Indication: SCIATIC NERVE NEUROPATHY
     Route: 048
     Dates: start: 20080522
  2. PREMARIN [Concomitant]
  3. HYDROCHLOROTHIAZIDE [Concomitant]
  4. LEVOTHYROXINE [Concomitant]
  5. LORTAB [Concomitant]
  6. PRILOSEC [Concomitant]

REACTIONS (5)
  - DIARRHOEA [None]
  - INSOMNIA [None]
  - OEDEMA PERIPHERAL [None]
  - SWELLING FACE [None]
  - URINARY TRACT DISORDER [None]
